FAERS Safety Report 24835374 (Version 1)
Quarter: 2025Q1

REPORT INFORMATION
  Report Type: Other
  Country: KR (occurrence: KR)
  Receive Date: 20250113
  Receipt Date: 20250113
  Transmission Date: 20250409
  Serious: Yes (Other)
  Sender: CREEKWOOD PHARMACEUTICALS LLC
  Company Number: KR-Creekwood Pharmaceuticals LLC-2168934

PATIENT
  Age: 54 Year
  Sex: Female

DRUGS (1)
  1. HYDROXYCHLOROQUINE SULFATE [Suspect]
     Active Substance: HYDROXYCHLOROQUINE SULFATE
     Indication: Sjogren^s syndrome

REACTIONS (4)
  - Hemianopia heteronymous [Unknown]
  - Product use in unapproved indication [Unknown]
  - Retinal toxicity [Unknown]
  - Retinopathy [Unknown]
